FAERS Safety Report 6106804-1 (Version None)
Quarter: 2009Q1

REPORT INFORMATION
  Report Type: 
  Country: None (occurrence: None)
  Receive Date: 20090304
  Receipt Date: 20090216
  Transmission Date: 20090719
  Serious: Yes (Hospitalization)
  Sender: FDA-Public Use
  Company Number: 000418

PATIENT
  Age: 16 Year
  Sex: Female

DRUGS (2)
  1. LACOSAMIDE [Suspect]
     Indication: CONVULSION
     Dosage: (50 MG BID), (100 MG BID)
  2. LAMOTRIGINE [Suspect]
     Indication: CONVULSION
     Dosage: (50 MG BID)

REACTIONS (3)
  - CONVULSION [None]
  - DRUG INTERACTION [None]
  - MENTAL DISORDER [None]
